FAERS Safety Report 17191536 (Version 1)
Quarter: 2019Q4

REPORT INFORMATION
  Report Type: Spontaneous
  Country: US (occurrence: US)
  Receive Date: 20191221
  Receipt Date: 20191221
  Transmission Date: 20200122
  Serious: Yes (Other)
  Sender: FDA-Public Use
  Company Number: None

PATIENT
  Age: 88 Year
  Sex: Female
  Weight: 46.8 kg

DRUGS (1)
  1. SOTALOL HCL 80 MG TAB GENERIC FOR BETAPACE 80MG TAB [Suspect]
     Active Substance: SOTALOL
     Indication: ATRIAL FIBRILLATION
     Dosage: ?          QUANTITY:.5 TABLET(S);?
     Route: 048
     Dates: start: 20140101

REACTIONS (5)
  - Drug intolerance [None]
  - Product quality issue [None]
  - Dizziness [None]
  - Therapy non-responder [None]
  - Syncope [None]

NARRATIVE: CASE EVENT DATE: 20191201
